FAERS Safety Report 17827080 (Version 1)
Quarter: 2020Q2

REPORT INFORMATION
  Report Type: Spontaneous
  Country: US (occurrence: US)
  Receive Date: 20200527
  Receipt Date: 20200527
  Transmission Date: 20200714
  Serious: No
  Sender: FDA-Public Use
  Company Number: US-TEVA-2020-US-1240139

PATIENT
  Age: 60 Year
  Sex: Female

DRUGS (1)
  1. TEMAZEPAM TEVA [Suspect]
     Active Substance: TEMAZEPAM
     Indication: SLEEP DISORDER
     Dosage: ONE TO TWO CAPSULES AS NEEDED
     Route: 065
     Dates: start: 20200421

REACTIONS (4)
  - Fear [Unknown]
  - Drug ineffective [Unknown]
  - Hangover [Unknown]
  - Somnolence [Unknown]
